FAERS Safety Report 7423339-4 (Version None)
Quarter: 2011Q2

REPORT INFORMATION
  Report Type: 
  Country: None (occurrence: None)
  Receive Date: 20110419
  Receipt Date: 20110405
  Transmission Date: 20111010
  Serious: Yes (Other)
  Sender: FDA-Public Use
  Company Number: PHHY2010DE63325

PATIENT
  Sex: Male

DRUGS (3)
  1. LEPONEX [Suspect]
     Indication: SCHIZOPHRENIA, PARANOID TYPE
     Dosage: 375 MG, QD
     Dates: start: 20070101
  2. RISPERIDONE [Concomitant]
     Dosage: 7 MG/D
  3. LEPONEX [Suspect]
     Dosage: 300 MG, QD

REACTIONS (4)
  - SALIVARY HYPERSECRETION [None]
  - ASPIRATION [None]
  - LUNG INFILTRATION [None]
  - OBSESSIVE-COMPULSIVE DISORDER [None]
